FAERS Safety Report 16596092 (Version 1)
Quarter: 2019Q3

REPORT INFORMATION
  Report Type: Spontaneous
  Country: US (occurrence: US)
  Receive Date: 20190719
  Receipt Date: 20190719
  Transmission Date: 20191004
  Serious: Yes (Other)
  Sender: FDA-Public Use
  Company Number: US-SA-2019SA195634

PATIENT
  Age: 67 Year
  Sex: Male

DRUGS (1)
  1. LEFLUNOMIDE. [Suspect]
     Active Substance: LEFLUNOMIDE
     Indication: PSORIATIC ARTHROPATHY
     Dosage: 20 MG, QD

REACTIONS (14)
  - Jaundice [Unknown]
  - Alanine aminotransferase increased [Unknown]
  - Cholangiolitis [Unknown]
  - Hepatic failure [Unknown]
  - Faeces pale [Unknown]
  - Encephalopathy [Unknown]
  - Ascites [Unknown]
  - Biliary fibrosis [Unknown]
  - Chromaturia [Unknown]
  - Blood alkaline phosphatase increased [Unknown]
  - Drug-induced liver injury [Unknown]
  - Abnormal loss of weight [Unknown]
  - Fibrosis [Unknown]
  - Fatigue [Unknown]
